FAERS Safety Report 9698871 (Version 1)
Quarter: 2013Q4

REPORT INFORMATION
  Report Type: Spontaneous
  Country: IT (occurrence: None)
  Receive Date: 20131118
  Receipt Date: 20131118
  Transmission Date: 20140711
  Serious: Yes (Hospitalization, Other)
  Sender: FDA-Public Use
  Company Number: 2013IT00754

PATIENT
  Age: 89 Year
  Sex: Female

DRUGS (2)
  1. CITALOPRAM [Suspect]
     Indication: DEPRESSION
     Dosage: 40 MG/D FOR 12 MONTHS
  2. LEVOSULPIRIDE [Suspect]
     Indication: DYSPEPSIA
     Dosage: 25 MG, TID

REACTIONS (7)
  - Drug interaction [None]
  - Electrocardiogram QT prolonged [None]
  - Cardiac arrest [None]
  - Ventricular tachycardia [None]
  - Electrocardiogram R on T phenomenon [None]
  - Bradycardia [None]
  - Syncope [None]
